FAERS Safety Report 20795811 (Version 3)
Quarter: 2022Q2

REPORT INFORMATION
  Report Type: Spontaneous
  Country: AR (occurrence: AR)
  Receive Date: 20220506
  Receipt Date: 20220520
  Transmission Date: 20220721
  Serious: Yes (Other)
  Sender: FDA-Public Use
  Company Number: AR-NOVARTISPH-NVSC2022AR101560

PATIENT
  Sex: Female

DRUGS (5)
  1. RITALIN LA [Suspect]
     Active Substance: METHYLPHENIDATE HYDROCHLORIDE
     Indication: Attention deficit hyperactivity disorder
     Dosage: 2 DOSAGE FORM, QD (START 2 YEARS AGO AND STOP 3 MONTHS AGO)
     Route: 065
  2. RITALIN LA [Suspect]
     Active Substance: METHYLPHENIDATE HYDROCHLORIDE
     Dosage: UNK, (STOPPED A MONTH AND HALF AGO)
     Route: 065
     Dates: start: 2019
  3. RITALIN LA [Suspect]
     Active Substance: METHYLPHENIDATE HYDROCHLORIDE
     Dosage: UNK
     Route: 065
  4. LAMOTRIGINE [Concomitant]
     Active Substance: LAMOTRIGINE
     Indication: Product used for unknown indication
     Dosage: UNK, DOES NOT REPORT EXACT DATE
     Route: 065
     Dates: start: 2019
  5. CLONAGIN [Concomitant]
     Indication: Product used for unknown indication
     Dosage: UNK, DOES NOT REPORT EXACT DATE
     Route: 065
     Dates: start: 2019

REACTIONS (3)
  - Disturbance in attention [Recovering/Resolving]
  - Hypoacusis [Unknown]
  - Anxiety [Recovering/Resolving]
